FAERS Safety Report 6631028-9 (Version None)
Quarter: 2010Q1

REPORT INFORMATION
  Report Type: 
  Country: None (occurrence: None)
  Receive Date: 20100311
  Receipt Date: 20100308
  Transmission Date: 20100710
  Serious: Yes (Hospitalization)
  Sender: FDA-Public Use
  Company Number: US-GILEAD-2010-0027546

PATIENT
  Sex: Female
  Weight: 62.198 kg

DRUGS (8)
  1. LETAIRIS [Suspect]
     Indication: PULMONARY ARTERIAL HYPERTENSION
     Route: 048
     Dates: start: 20090505
  2. COUMADIN [Concomitant]
  3. AMLODIPINE BESYLATE [Concomitant]
  4. VASOTEC [Concomitant]
  5. CIALIS [Concomitant]
  6. NEXIUM [Concomitant]
  7. POT CHLORIDE [Concomitant]
  8. AZITHROMYC [Concomitant]

REACTIONS (3)
  - DIZZINESS [None]
  - PNEUMONIA [None]
  - SYNCOPE [None]
